FAERS Safety Report 15629418 (Version 2)
Quarter: 2018Q4

REPORT INFORMATION
  Report Type: Report from Study
  Country: US (occurrence: US)
  Receive Date: 20181117
  Receipt Date: 20181121
  Transmission Date: 20190205
  Serious: Yes (Hospitalization, Other)
  Sender: FDA-Public Use
  Company Number: US-TEVA-2018-US-977689

PATIENT
  Sex: Female
  Weight: 57.2 kg

DRUGS (6)
  1. REVATIO [Concomitant]
     Active Substance: SILDENAFIL CITRATE
  2. GABAPENTIN. [Suspect]
     Active Substance: GABAPENTIN
     Indication: PRODUCT USED FOR UNKNOWN INDICATION
     Route: 065
  3. TYVASO [Suspect]
     Active Substance: TREPROSTINIL
     Indication: PULMONARY ARTERIAL HYPERTENSION
     Dosage: 60-120 MCG
     Route: 055
     Dates: start: 20131029
  4. LETAIRIS [Concomitant]
     Active Substance: AMBRISENTAN
  5. PREDNISONE. [Concomitant]
     Active Substance: PREDNISONE
     Dosage: 20 MILLIGRAM DAILY;
  6. PREDNISONE. [Concomitant]
     Active Substance: PREDNISONE
     Dosage: 7.5 MILLIGRAM DAILY;

REACTIONS (5)
  - Wheezing [Unknown]
  - Off label use [Unknown]
  - Pulmonary congestion [Unknown]
  - Sleep deficit [Unknown]
  - Respiratory distress [Unknown]

NARRATIVE: CASE EVENT DATE: 2018
